FAERS Safety Report 7973859-9 (Version None)
Quarter: 2011Q4

REPORT INFORMATION
  Report Type: 
  Country: None (occurrence: None)
  Receive Date: 20111213
  Receipt Date: 20111201
  Transmission Date: 20120403
  Serious: Yes (Life-Threatening)
  Sender: FDA-Public Use
  Company Number: JP-UCBSA-046666

PATIENT
  Age: 5 Year
  Sex: Female
  Weight: 9.7 kg

DRUGS (9)
  1. KEPPRA [Suspect]
     Route: 048
  2. DANTRIUM [Suspect]
     Route: 048
  3. KEPPRA [Suspect]
     Route: 048
     Dates: start: 20111101, end: 20111101
  4. LIORESAL [Suspect]
  5. MYSTAN [Suspect]
     Route: 048
  6. LEXOTAN [Suspect]
     Route: 048
  7. KEPPRA [Suspect]
     Indication: EPILEPSY
     Route: 048
     Dates: start: 20111201
  8. PHENOBARBITAL TAB [Suspect]
     Route: 048
  9. HALOPERIDOL [Suspect]
     Dosage: 0.5 MG
     Route: 048

REACTIONS (2)
  - SOMNOLENCE [None]
  - APNOEA [None]
